FAERS Safety Report 12079490 (Version 2)
Quarter: 2016Q1

REPORT INFORMATION
  Report Type: Spontaneous
  Country: US (occurrence: US)
  Receive Date: 20160216
  Receipt Date: 20160224
  Transmission Date: 20160526
  Serious: Yes (Other)
  Sender: FDA-Public Use
  Company Number: PHEH2016US003426

PATIENT
  Sex: Female

DRUGS (5)
  1. KLONOPIN [Concomitant]
     Active Substance: CLONAZEPAM
     Indication: PRODUCT USED FOR UNKNOWN INDICATION
     Route: 065
  2. GABAPENTIN. [Concomitant]
     Active Substance: GABAPENTIN
     Indication: PRODUCT USED FOR UNKNOWN INDICATION
     Route: 065
  3. ZOMETA [Suspect]
     Active Substance: ZOLEDRONIC ACID
     Indication: BREAST CANCER
     Dosage: UNK
     Route: 065
     Dates: start: 2005
  4. ZOMETA [Suspect]
     Active Substance: ZOLEDRONIC ACID
     Dosage: UNK
     Route: 065
     Dates: start: 2007
  5. ALBUTEROL. [Concomitant]
     Active Substance: ALBUTEROL
     Indication: PRODUCT USED FOR UNKNOWN INDICATION
     Route: 065

REACTIONS (31)
  - Gingival disorder [Unknown]
  - Fall [Unknown]
  - Visual impairment [Unknown]
  - Cough [Unknown]
  - Myalgia [Unknown]
  - Breast cancer [Unknown]
  - Tooth injury [Unknown]
  - Back pain [Unknown]
  - Insomnia [Unknown]
  - Constipation [Unknown]
  - Weight decreased [Unknown]
  - Hypoaesthesia [Unknown]
  - Intestinal prolapse [Unknown]
  - Bone pain [Unknown]
  - Dyspnoea [Unknown]
  - Bone disorder [Unknown]
  - Osteoarthritis [Unknown]
  - Anxiety [Unknown]
  - Joint swelling [Unknown]
  - Diplopia [Unknown]
  - Urinary tract infection [Unknown]
  - Dizziness [Unknown]
  - Fatigue [Unknown]
  - Asthenia [Unknown]
  - Tooth disorder [Unknown]
  - Paraesthesia [Unknown]
  - Decreased appetite [Unknown]
  - Weight increased [Unknown]
  - Abdominal pain [Unknown]
  - Arthralgia [Unknown]
  - Peripheral swelling [Unknown]

NARRATIVE: CASE EVENT DATE: 2007
